FAERS Safety Report 6095861-7 (Version None)
Quarter: 2009Q1

REPORT INFORMATION
  Report Type: 
  Country: None (occurrence: None)
  Receive Date: 20090227
  Receipt Date: 20080620
  Transmission Date: 20090719
  Serious: No
  Sender: FDA-Public Use
  Company Number: A0735414A

PATIENT
  Sex: Male

DRUGS (1)
  1. LAMICTAL [Suspect]
     Indication: DRUG USE FOR UNKNOWN INDICATION
     Dosage: 150MG UNKNOWN
     Route: 048

REACTIONS (1)
  - HYPERSENSITIVITY [None]
